FAERS Safety Report 5603834-0 (Version None)
Quarter: 2008Q1

REPORT INFORMATION
  Report Type: 
  Country: None (occurrence: None)
  Receive Date: 20080122
  Receipt Date: 20071109
  Transmission Date: 20080703
  Serious: Yes (Other)
  Sender: FDA-Public Use
  Company Number: MK-6023455

PATIENT
  Age: 24 Year
  Sex: Female

DRUGS (2)
  1. AMNESTEEM [Suspect]
     Indication: DRUG USE FOR UNKNOWN INDICATION
     Dosage: 40 MG; DAILY; ORAL
     Route: 048
     Dates: start: 20060201, end: 20060601
  2. ORTHO TRI-CYCLEN (CON.) [Concomitant]

REACTIONS (3)
  - ABORTION INDUCED [None]
  - DRUG EXPOSURE DURING PREGNANCY [None]
  - PREGNANCY [None]
